FAERS Safety Report 6640018-1 (Version None)
Quarter: 2010Q1

REPORT INFORMATION
  Report Type: 
  Country: None (occurrence: None)
  Receive Date: 20100318
  Receipt Date: 20100308
  Transmission Date: 20100710
  Serious: Yes (Other)
  Sender: FDA-Public Use
  Company Number: PHHY2010GB14537

PATIENT
  Sex: Female

DRUGS (1)
  1. ESTRADERM [Suspect]
     Indication: HORMONE REPLACEMENT THERAPY
     Dosage: 50 UNK, UNK
     Route: 062
     Dates: start: 20091201

REACTIONS (6)
  - ABDOMINAL PAIN UPPER [None]
  - BREAST CYST [None]
  - CYSTITIS [None]
  - HYPERSENSITIVITY [None]
  - MALAISE [None]
  - VAGINAL INFLAMMATION [None]
